FAERS Safety Report 5150533-8 (Version None)
Quarter: 2006Q4

REPORT INFORMATION
  Report Type: 
  Country: None (occurrence: None)
  Receive Date: 20061108
  Receipt Date: 20061026
  Transmission Date: 20070319
  Serious: Yes (Other)
  Sender: FDA-Public Use
  Company Number: 2006038703

PATIENT
  Age: 35 Year
  Sex: Female

DRUGS (1)
  1. CABERGOLINE [Suspect]
     Indication: PARKINSON'S DISEASE

REACTIONS (3)
  - COUGH [None]
  - DYSPNOEA [None]
  - PLEURAL FIBROSIS [None]
